FAERS Safety Report 8047329-6 (Version None)
Quarter: 2012Q1

REPORT INFORMATION
  Report Type: 
  Country: None (occurrence: None)
  Receive Date: 20120116
  Receipt Date: 20120112
  Transmission Date: 20120608
  Serious: No
  Sender: FDA-Public Use
  Company Number: US-TEVA-314681USA

PATIENT
  Sex: Female
  Weight: 70.37 kg

DRUGS (4)
  1. PLAN B ONE-STEP [Suspect]
     Dosage: 1.5 MILLIGRAM;
     Route: 048
  2. PLAN B ONE-STEP [Suspect]
     Dosage: 1.5 MILLIGRAM;
     Route: 048
     Dates: start: 20111214, end: 20111214
  3. MIFEPRISTONE (MIFEPREX) [Suspect]
     Indication: PRODUCT USED FOR UNKNOWN INDICATION
  4. PLAN B ONE-STEP [Suspect]
     Indication: POST COITAL CONTRACEPTION
     Dosage: 1.5 MILLIGRAM;
     Route: 048

REACTIONS (7)
  - ABDOMINAL PAIN UPPER [None]
  - MENORRHAGIA [None]
  - MENSTRUATION IRREGULAR [None]
  - PELVIC PAIN [None]
  - OVARIAN CYST RUPTURED [None]
  - HOT FLUSH [None]
  - BREAST TENDERNESS [None]
